FAERS Safety Report 23883588 (Version 1)
Quarter: 2024Q2

REPORT INFORMATION
  Report Type: Spontaneous
  Country: US (occurrence: None)
  Receive Date: 20240521
  Receipt Date: 20240521
  Transmission Date: 20240716
  Serious: Yes (Life-Threatening, Hospitalization)
  Sender: FDA-Public Use
  Company Number: None

PATIENT
  Age: 66 Year
  Sex: Male
  Weight: 120 kg

DRUGS (3)
  1. CEFDINIR [Suspect]
     Active Substance: CEFDINIR
     Indication: Infection
     Dosage: 300 MG EVERY DAY PO
     Route: 048
     Dates: start: 20240116, end: 20240124
  2. MACROBID [Suspect]
     Active Substance: NITROFURANTOIN\NITROFURANTOIN MONOHYDRATE
  3. WARFARIN [Suspect]
     Active Substance: WARFARIN

REACTIONS (4)
  - Anticoagulation drug level above therapeutic [None]
  - Rash [None]
  - Pruritus [None]
  - Therapy interrupted [None]

NARRATIVE: CASE EVENT DATE: 20240122
